FAERS Safety Report 11341469 (Version 2)
Quarter: 2016Q1

REPORT INFORMATION
  Report Type: Spontaneous
  Country: US (occurrence: US)
  Receive Date: 20150805
  Receipt Date: 20160315
  Transmission Date: 20160525
  Serious: No
  Sender: FDA-Public Use
  Company Number: US-JNJFOC-20150519845

PATIENT

DRUGS (1)
  1. ZYTIGA [Suspect]
     Active Substance: ABIRATERONE ACETATE
     Indication: PRODUCT USED FOR UNKNOWN INDICATION
     Route: 065
     Dates: start: 20140430

REACTIONS (2)
  - Disease progression [Unknown]
  - Drug ineffective [Unknown]
